FAERS Safety Report 10974929 (Version 2)
Quarter: 2015Q2

REPORT INFORMATION
  Report Type: Spontaneous
  Country: JP (occurrence: JP)
  Receive Date: 20150401
  Receipt Date: 20150417
  Transmission Date: 20150821
  Serious: Yes (Hospitalization, Other)
  Sender: FDA-Public Use
  Company Number: JP-MERCK-1502JPN009073

PATIENT
  Age: 72 Year
  Sex: Female

DRUGS (12)
  1. LANSOPRAZOLE. [Concomitant]
     Active Substance: LANSOPRAZOLE
     Dosage: 15 MG/DAY
     Route: 048
  2. TALION (BEPOTASTINE BESYLATE) [Concomitant]
     Active Substance: BEPOTASTINE
     Indication: PRURIGO
     Dosage: 20 MG/DAY
     Route: 048
     Dates: start: 20090207
  3. HOKUNALIN [Concomitant]
     Active Substance: TULOBUTEROL
     Indication: ASTHMA
     Dosage: 2 MICROGRAM, QD
     Route: 062
  4. NICORANDIL [Concomitant]
     Active Substance: NICORANDIL
     Indication: MYOCARDIAL INFARCTION
     Dosage: 10 MG, QD
     Route: 048
  5. YODEL S [Concomitant]
     Active Substance: SENNA LEAF\SENNOSIDES\SENNOSIDES A AND B
     Indication: CONSTIPATION
     Dosage: 80 MG, QD
     Route: 048
  6. PREDNISOLONE. [Concomitant]
     Active Substance: PREDNISOLONE
     Indication: PRURIGO
     Dosage: 3 MG, QD
     Route: 048
  7. NEORAL [Concomitant]
     Active Substance: CYCLOSPORINE
     Indication: PRURIGO
     Dosage: 100 MG/DAY
     Route: 048
  8. MAGMITT [Concomitant]
     Active Substance: MAGNESIUM OXIDE
     Indication: CONSTIPATION
     Dosage: 500 MG, QD
     Route: 048
  9. BONALON [Suspect]
     Active Substance: ALENDRONATE SODIUM
     Indication: OSTEOPOROSIS PROPHYLAXIS
     Dosage: 35 MG WEEKLY
     Route: 048
     Dates: end: 201411
  10. OLOPATADINE HYDROCHLORIDE. [Concomitant]
     Active Substance: OLOPATADINE HYDROCHLORIDE
     Indication: ASTHMA
     Dosage: 10 MG/DAY
  11. PRANLUKAST [Concomitant]
     Active Substance: PRANLUKAST
     Indication: ASTHMA
     Dosage: 448.8 MG, QD
     Route: 048
  12. HERLAT [Concomitant]
     Indication: HYPERTENSION
     Dosage: 20 MG, QD
     Route: 048

REACTIONS (3)
  - Stress fracture [Not Recovered/Not Resolved]
  - Atypical femur fracture [Recovering/Resolving]
  - Pathological fracture [Not Recovered/Not Resolved]

NARRATIVE: CASE EVENT DATE: 20141107
